FAERS Safety Report 4942683-3 (Version None)
Quarter: 2006Q1

REPORT INFORMATION
  Report Type: 
  Country: None (occurrence: None)
  Receive Date: 20060309
  Receipt Date: 20060306
  Transmission Date: 20060701
  Serious: Yes (Life-Threatening, Hospitalization)
  Sender: FDA-Public Use
  Company Number: 219631

PATIENT
  Age: 63 Year
  Sex: Female

DRUGS (1)
  1. AVASTIN [Suspect]
     Indication: COLORECTAL CANCER

REACTIONS (5)
  - OPEN WOUND [None]
  - POST PROCEDURAL COMPLICATION [None]
  - PURULENCE [None]
  - SEPSIS [None]
  - WOUND DEHISCENCE [None]
